FAERS Safety Report 9139008 (Version 1)
Quarter: 2013Q1

REPORT INFORMATION
  Report Type: Spontaneous
  Country: PT (occurrence: PT)
  Receive Date: 20130305
  Receipt Date: 20130305
  Transmission Date: 20140127
  Serious: Yes (Death, Other)
  Sender: FDA-Public Use
  Company Number: PT-BRISTOL-MYERS SQUIBB COMPANY-17431057

PATIENT
  Sex: 0

DRUGS (1)
  1. STOCRIN TABS [Suspect]
     Dosage: FILM COATED TABS
     Route: 064
     Dates: start: 201202

REACTIONS (2)
  - Foetal malformation [Fatal]
  - Foetal exposure during pregnancy [Unknown]
